FAERS Safety Report 5182227-7 (Version None)
Quarter: 2006Q4

REPORT INFORMATION
  Report Type: 
  Country: None (occurrence: None)
  Receive Date: 20061220
  Receipt Date: 20061214
  Transmission Date: 20070319
  Serious: Yes (Hospitalization)
  Sender: FDA-Public Use
  Company Number: 2006UW27982

PATIENT
  Age: 56 Year
  Sex: Male
  Weight: 102 kg

DRUGS (17)
  1. SEROQUEL [Suspect]
     Dosage: 100 MG AM, 150 MG HS
     Route: 048
     Dates: start: 20050601, end: 20060201
  2. SEROQUEL [Suspect]
     Route: 048
     Dates: start: 20060911
  3. BUPROPION HCL [Concomitant]
  4. BUDEPRION SR [Concomitant]
  5. GLIPIZIDE [Concomitant]
  6. LISINOPRIL [Concomitant]
  7. DILTIAZEM HCL [Concomitant]
  8. HYDROCHLOROTHIAZIDE [Concomitant]
  9. METOPROLOL SUCCINATE [Concomitant]
  10. AVANDIA [Concomitant]
  11. GEODON [Concomitant]
  12. METFORMIN [Concomitant]
  13. LIVER A [Concomitant]
  14. ALPHA L [Concomitant]
  15. FLOMAX [Concomitant]
  16. TRAMADOL HCL [Concomitant]
  17. STOOL SOFTENER [Concomitant]

REACTIONS (1)
  - CAROTID ARTERY STENOSIS [None]
